FAERS Safety Report 5683004-0 (Version None)
Quarter: 2008Q1

REPORT INFORMATION
  Report Type: 
  Country: None (occurrence: None)
  Receive Date: 20080327
  Receipt Date: 20080320
  Transmission Date: 20080703
  Serious: Yes (Hospitalization, Other)
  Sender: FDA-Public Use
  Company Number: NL-SANOFI-SYNTHELABO-F01200601243

PATIENT
  Sex: Male
  Weight: 93 kg

DRUGS (6)
  1. SIMVASTATIN [Concomitant]
     Dosage: UNK
  2. CAPTOPRIL [Concomitant]
     Dosage: UNK
  3. LEUCOVORIN CALCIUM [Suspect]
     Route: 041
     Dates: start: 20060426, end: 20060426
  4. AVASTIN [Suspect]
     Route: 041
     Dates: start: 20060428, end: 20060428
  5. FLUOROURACIL [Suspect]
     Route: 042
     Dates: start: 20060426, end: 20060428
  6. OXALIPLATIN [Suspect]
     Indication: COLORECTAL CANCER METASTATIC
     Dosage: Q2W
     Route: 042
     Dates: start: 20060426, end: 20060426

REACTIONS (1)
  - LEUKOCYTOCLASTIC VASCULITIS [None]
